FAERS Safety Report 24568153 (Version 1)
Quarter: 2024Q4

REPORT INFORMATION
  Report Type: Spontaneous
  Country: US (occurrence: US)
  Receive Date: 20241031
  Receipt Date: 20241031
  Transmission Date: 20250115
  Serious: Yes (Other)
  Sender: GLENMARK
  Company Number: US-MLMSERVICE-20241015-PI227026-00323-2

PATIENT

DRUGS (4)
  1. TRIAMCINOLONE ACETONIDE [Suspect]
     Active Substance: TRIAMCINOLONE ACETONIDE
     Indication: Osteoarthritis
     Dosage: 5 MILLILITER, SINGLE (FORMULATION: INJECTION) INTRAARTICULAR THUMB INJECTION
     Route: 031
  2. CARBOXYMETHYLCELLULOSE [Suspect]
     Active Substance: CARBOXYMETHYLCELLULOSE
     Indication: Osteoarthritis
     Dosage: UNK, INTRAARTICULAR SHOULDER INJECTION
     Route: 014
  3. LIDOCAINE [Concomitant]
     Active Substance: LIDOCAINE
     Indication: Osteoarthritis
     Dosage: 0.2 MILLILITER, SINGLE (LEFT THUMB WITH AN INJECTION)
     Route: 031
  4. BUPIVACAINE [Concomitant]
     Active Substance: BUPIVACAINE
     Indication: Osteoarthritis
     Dosage: UNK
     Route: 065

REACTIONS (1)
  - Anaphylactic reaction [Recovered/Resolved]
